FAERS Safety Report 8870972 (Version 1)
Quarter: 2012Q4

REPORT INFORMATION
  Report Type: 
  Country: US (occurrence: US)
  Receive Date: 20121026
  Receipt Date: 20121026
  Transmission Date: 20130627
  Serious: No
  Sender: FDA-Public Use
  Company Number: US-AMGEN-USASP2012043208

PATIENT
  Age: 43 Year
  Sex: Female
  Weight: 61.22 kg

DRUGS (2)
  1. ENBREL [Suspect]
     Indication: PRODUCT USED FOR UNKNOWN INDICATION
     Dosage: 50 mg, qwk
     Route: 058
  2. NABUMETONE [Concomitant]
     Dosage: 750 mg, UNK

REACTIONS (6)
  - Muscle twitching [Unknown]
  - Feeling abnormal [Unknown]
  - Sensation of heaviness [Unknown]
  - Oedema peripheral [Unknown]
  - Vision blurred [Unknown]
  - Paraesthesia [Unknown]
